FAERS Safety Report 24224963 (Version 1)
Quarter: 2024Q3

REPORT INFORMATION
  Report Type: Spontaneous
  Country: SA (occurrence: SA)
  Receive Date: 20240820
  Receipt Date: 20240820
  Transmission Date: 20241017
  Serious: Yes (Death, Life-Threatening, Hospitalization, Other)
  Sender: Steriscience PTE
  Company Number: SA-STERISCIENCE B.V.-2024-ST-001197

PATIENT
  Age: 2 Month
  Sex: Female

DRUGS (2)
  1. GANCICLOVIR SODIUM [Suspect]
     Active Substance: GANCICLOVIR SODIUM
     Indication: Cytomegalovirus infection
     Dosage: 15 MILLIGRAM/KILOGRAM, QD
     Route: 042
  2. VALGANCICLOVIR [Concomitant]
     Active Substance: VALGANCICLOVIR
     Indication: Cytomegalovirus infection
     Dosage: 30 MILLIGRAM/KILOGRAM, QD
     Route: 065

REACTIONS (4)
  - Acute respiratory distress syndrome [Fatal]
  - Condition aggravated [Fatal]
  - Drug ineffective [Fatal]
  - Product use issue [Unknown]
